FAERS Safety Report 23738336 (Version 1)
Quarter: 2024Q2

REPORT INFORMATION
  Report Type: Spontaneous
  Country: SE (occurrence: SE)
  Receive Date: 20240412
  Receipt Date: 20240412
  Transmission Date: 20240715
  Serious: Yes (Death)
  Sender: FDA-Public Use
  Company Number: None

PATIENT
  Age: 85 Year
  Sex: Male

DRUGS (1)
  1. EYLEA [Suspect]
     Active Substance: AFLIBERCEPT
     Indication: Diabetic retinal oedema
     Dosage: 2 MG, ONCE, 40 MG/ML, SOLUTION FOR INJECTION IN PRE-FILLED SYRINGE
     Route: 031
     Dates: start: 20230912, end: 20230912

REACTIONS (1)
  - Myocardial infarction [Fatal]
